FAERS Safety Report 5330831-5 (Version None)
Quarter: 2007Q2

REPORT INFORMATION
  Report Type: 
  Country: None (occurrence: None)
  Receive Date: 20070518
  Receipt Date: 20070518
  Transmission Date: 20071010
  Serious: Yes (Disabling)
  Sender: FDA-Public Use
  Company Number: None

PATIENT
  Sex: Female
  Weight: 117.9352 kg

DRUGS (1)
  1. BETAMETHASONE [Suspect]
     Indication: CHRONIC SINUSITIS
     Dosage: 3ML/0.8MG EVERY 12HR/6 WKS INHALED
     Route: 055
     Dates: start: 20041001, end: 20041201

REACTIONS (1)
  - DIABETES MELLITUS NON-INSULIN-DEPENDENT [None]
